FAERS Safety Report 8926959 (Version 2)
Quarter: 2012Q4

REPORT INFORMATION
  Report Type: 
  Country: FR (occurrence: FR)
  Receive Date: 20121127
  Receipt Date: 20121128
  Transmission Date: 20130627
  Serious: Yes (Hospitalization)
  Sender: FDA-Public Use
  Company Number: FR-TEVA-372161USA

PATIENT
  Age: 77 Year
  Sex: Male

DRUGS (15)
  1. TREANDA [Suspect]
     Indication: CHRONIC LYMPHOCYTIC LEUKAEMIA
     Route: 042
     Dates: start: 20120327
  2. MABTHERA [Suspect]
     Indication: CHRONIC LYMPHOCYTIC LEUKAEMIA
     Route: 042
     Dates: start: 20120327
  3. DUPHALAC [Concomitant]
     Dosage: 3 days
  4. PARACETAMOL [Concomitant]
     Dosage: 3 days
  5. POLARAMINE [Concomitant]
     Dosage: 3 days
  6. ZOPHREN [Concomitant]
     Dosage: 3 days
  7. PRIMPERAN [Concomitant]
     Dosage: as needed
  8. INEXIUM [Concomitant]
     Dosage: 40 Milligram Daily;
  9. ZELITREX [Concomitant]
  10. VIVAGLOBIN [Concomitant]
  11. SERETIDE [Concomitant]
  12. SPIRIVA [Concomitant]
  13. BRONCHODUAL [Concomitant]
  14. STILNOX [Concomitant]
  15. GRANOCYTE 34 [Concomitant]

REACTIONS (5)
  - Pancytopenia [Recovering/Resolving]
  - Anaemia [Recovering/Resolving]
  - Thrombocytopenia [Recovering/Resolving]
  - Leukopenia [Recovering/Resolving]
  - Neutropenia [Recovering/Resolving]
